FAERS Safety Report 5664755-0 (Version None)
Quarter: 2008Q1

REPORT INFORMATION
  Report Type: 
  Country: None (occurrence: None)
  Receive Date: 20080312
  Receipt Date: 20080305
  Transmission Date: 20080703
  Serious: Yes (Hospitalization)
  Sender: FDA-Public Use
  Company Number: 163-20785-08030371

PATIENT
  Age: 59 Year
  Sex: Male

DRUGS (1)
  1. THALOMID [Suspect]
     Indication: MULTIPLE MYELOMA
     Dosage: 100 MG, 1 IN 1 D, ORAL
     Route: 048
     Dates: start: 20010817

REACTIONS (5)
  - BACK PAIN [None]
  - BLOOD CALCIUM DECREASED [None]
  - DRUG INEFFECTIVE [None]
  - MUSCULOSKELETAL CHEST PAIN [None]
  - RENAL DISORDER [None]
